FAERS Safety Report 24188711 (Version 1)
Quarter: 2024Q3

REPORT INFORMATION
  Report Type: Spontaneous
  Country: US (occurrence: US)
  Receive Date: 20240808
  Receipt Date: 20240808
  Transmission Date: 20241017
  Serious: No
  Sender: OTSUKA
  Company Number: US-OTSUKA-2023_029907

PATIENT
  Sex: Male

DRUGS (1)
  1. ABILIFY [Suspect]
     Active Substance: ARIPIPRAZOLE
     Indication: Abnormal behaviour
     Dosage: 1 DF, QD (ONE TABLET DAILY)
     Route: 048
     Dates: end: 2023

REACTIONS (2)
  - Gambling disorder [Recovered/Resolved]
  - Product use in unapproved indication [Unknown]
